FAERS Safety Report 5949528-3 (Version None)
Quarter: 2008Q4

REPORT INFORMATION
  Report Type: 
  Country: None (occurrence: None)
  Receive Date: 20081112
  Receipt Date: 20081106
  Transmission Date: 20090506
  Serious: Yes (Death, Other)
  Sender: FDA-Public Use
  Company Number: PHBS2008JP06232

PATIENT

DRUGS (2)
  1. ESTRADERM [Suspect]
     Dosage: 1.44 MG
     Route: 064
  2. P [Concomitant]
     Dosage: 200MG
     Route: 064

REACTIONS (4)
  - CARDIAC ARREST [None]
  - CARDIAC DISORDER [None]
  - CONJOINED TWINS [None]
  - DRUG EXPOSURE DURING PREGNANCY [None]
